FAERS Safety Report 4315991-7 (Version None)
Quarter: 2004Q1

REPORT INFORMATION
  Report Type: 
  Country: None (occurrence: None)
  Receive Date: 20040311
  Receipt Date: 20040301
  Transmission Date: 20041129
  Serious: Yes (Death, Life-Threatening)
  Sender: FDA-Public Use
  Company Number: 2004AP01222

PATIENT
  Age: 65 Year
  Sex: Male

DRUGS (22)
  1. IRESSA [Suspect]
     Indication: LUNG SQUAMOUS CELL CARCINOMA STAGE UNSPECIFIED
     Dosage: 250 MG DAILY PO
     Route: 048
     Dates: start: 20030826, end: 20031017
  2. IRESSA [Suspect]
     Indication: NON-SMALL CELL LUNG CANCER RECURRENT
     Dosage: 250 MG DAILY PO
     Route: 048
     Dates: start: 20030826, end: 20031017
  3. MS CONTIN [Concomitant]
  4. AMOBAN [Concomitant]
  5. TINELAC [Concomitant]
  6. MAGNEXIUM OXIDE [Concomitant]
  7. PRIMPERAN INJ [Concomitant]
  8. DUROTEP JANSSEN [Concomitant]
  9. RITALIN [Concomitant]
  10. MEROPEN [Concomitant]
  11. UREPEARL [Concomitant]
  12. LAMISIL [Concomitant]
  13. NOVAMIN [Concomitant]
  14. NAIXAN [Concomitant]
  15. ESTAZOLAM [Concomitant]
  16. FLIVAS [Concomitant]
  17. FIRSTCIN [Concomitant]
  18. LOXONIN [Concomitant]
  19. SELBEX [Concomitant]
  20. CARBOPLATIN [Concomitant]
  21. TAXOL [Concomitant]
  22. RADIOTHERAPY [Concomitant]

REACTIONS (11)
  - ALANINE AMINOTRANSFERASE INCREASED [None]
  - ASPARTATE AMINOTRANSFERASE INCREASED [None]
  - BLOOD LACTATE DEHYDROGENASE INCREASED [None]
  - DRUG INEFFECTIVE [None]
  - DYSPNOEA [None]
  - GAMMA-GLUTAMYLTRANSFERASE INCREASED [None]
  - HEPATIC FUNCTION ABNORMAL [None]
  - LUNG INFILTRATION [None]
  - LUNG INJURY [None]
  - OXYGEN SATURATION DECREASED [None]
  - WHITE BLOOD CELL COUNT INCREASED [None]
